FAERS Safety Report 6265018-5 (Version None)
Quarter: 2009Q3

REPORT INFORMATION
  Report Type: 
  Country: None (occurrence: None)
  Receive Date: 20090713
  Receipt Date: 20090707
  Transmission Date: 20100115
  Serious: Yes (Hospitalization)
  Sender: FDA-Public Use
  Company Number: JP-JNJFOC-20090701025

PATIENT
  Age: 47 Year
  Sex: Male

DRUGS (1)
  1. CRAVIT [Suspect]
     Indication: PROSTATITIS
     Route: 048

REACTIONS (2)
  - HEPATIC FUNCTION ABNORMAL [None]
  - HEPATITIS [None]
